FAERS Safety Report 16255642 (Version 1)
Quarter: 2019Q2

REPORT INFORMATION
  Report Type: Spontaneous
  Country: US (occurrence: US)
  Receive Date: 20190429
  Receipt Date: 20190429
  Transmission Date: 20190711
  Serious: Yes (Hospitalization)
  Sender: FDA-Public Use
  Company Number: None

PATIENT
  Age: 61 Year
  Sex: Female

DRUGS (19)
  1. SERTRALINE TAB 50MG [Concomitant]
  2. BRINTELLIX TAB 10MG [Concomitant]
  3. FISH OIL CAP 1000MG [Concomitant]
  4. GLIMEPIRIDE TAB 1MG [Concomitant]
  5. IMIPRAM PAM CAP 75MG [Concomitant]
  6. MEFORMIN TAB 500MG [Concomitant]
  7. MULTI VITAMIN TAB MINERALS [Concomitant]
  8. DICLOFENAC TAB 100MG ER [Concomitant]
  9. BYDUREON INJ BCISE [Concomitant]
  10. LISINOPRIL TAB 10MG [Concomitant]
  11. LORAZEPAM TAB 0.5MG [Concomitant]
  12. NEXIUM CAP 20MG [Concomitant]
  13. CIMZIA [Suspect]
     Active Substance: CERTOLIZUMAB PEGOL
     Indication: RHEUMATOID ARTHRITIS
     Dosage: ?          OTHER FREQUENCY:EVERY TWO WEEKS;?
     Route: 058
     Dates: start: 20110708
  14. HYDROCO/APAP TAB 5-325MG [Concomitant]
     Active Substance: ACETAMINOPHEN\HYDROCODONE
  15. NEURONTIN TAB 800MG [Concomitant]
  16. TRESIBA FLEX INJ 100UNIT [Concomitant]
  17. ASPIR-81 TAB 81MG EC [Concomitant]
  18. SYNTHROID TAB 50MCG [Concomitant]
  19. LIPITOR TAB 20MG [Concomitant]

REACTIONS (2)
  - Staphylococcal infection [None]
  - Rheumatoid arthritis [None]

NARRATIVE: CASE EVENT DATE: 20190326
